FAERS Safety Report 24004919 (Version 2)
Quarter: 2024Q2

REPORT INFORMATION
  Report Type: Spontaneous
  Country: GB (occurrence: GB)
  Receive Date: 20240624
  Receipt Date: 20240628
  Transmission Date: 20240716
  Serious: Yes (Other)
  Sender: FDA-Public Use
  Company Number: GB-MYLANLABS-2024M1055949

PATIENT
  Sex: Female

DRUGS (1)
  1. CLOZARIL [Suspect]
     Active Substance: CLOZAPINE
     Indication: Schizophrenia
     Dosage: 12.5 MILLIGRAM, QD (12.5 MG NIGHTLY)
     Route: 048
     Dates: start: 20221128

REACTIONS (4)
  - Dementia [Unknown]
  - Hallucination [Unknown]
  - Paranoia [Unknown]
  - Somnolence [Unknown]
